FAERS Safety Report 6014649-6 (Version None)
Quarter: 2008Q4

REPORT INFORMATION
  Report Type: 
  Country: None (occurrence: None)
  Receive Date: 20081219
  Receipt Date: 20081117
  Transmission Date: 20090506
  Serious: No
  Sender: FDA-Public Use
  Company Number: A0752003A

PATIENT
  Age: 81 Year
  Sex: Male

DRUGS (4)
  1. AVODART [Suspect]
     Indication: PROSTATE CANCER
     Dosage: .5MG PER DAY
     Route: 048
     Dates: start: 20051005, end: 20060901
  2. WARFARIN SODIUM [Concomitant]
  3. LIPITOR [Concomitant]
  4. LUPRON DEPOT [Concomitant]
     Dates: end: 20050406

REACTIONS (2)
  - BREAST ENLARGEMENT [None]
  - RASH [None]
